FAERS Safety Report 15125279 (Version 3)
Quarter: 2020Q3

REPORT INFORMATION
  Report Type: Report from Study
  Country: US (occurrence: US)
  Receive Date: 20180710
  Receipt Date: 20200911
  Transmission Date: 20201102
  Serious: Yes (Other)
  Sender: FDA-Public Use
  Company Number: US-ASTELLAS-2018US030375

PATIENT
  Age: 75 Year
  Sex: Male

DRUGS (3)
  1. ENZALUTAMIDE [Suspect]
     Active Substance: ENZALUTAMIDE
     Indication: PROSTATE CANCER
     Route: 048
     Dates: start: 20180406
  2. ENZALUTAMIDE [Suspect]
     Active Substance: ENZALUTAMIDE
     Route: 048
  3. ENZALUTAMIDE [Suspect]
     Active Substance: ENZALUTAMIDE
     Dosage: UNK UNK, UNKNOWN FREQ.
     Route: 065

REACTIONS (11)
  - Sensory disturbance [Unknown]
  - Joint swelling [Unknown]
  - Gait disturbance [Unknown]
  - Joint instability [Unknown]
  - Skin discolouration [Unknown]
  - Discomfort [Unknown]
  - Fatigue [Unknown]
  - Hypoaesthesia [Unknown]
  - Condition aggravated [Unknown]
  - Suicidal ideation [Unknown]
  - Balance disorder [Unknown]

NARRATIVE: CASE EVENT DATE: 20200528
